FAERS Safety Report 8839386 (Version 1)
Quarter: 2012Q4

REPORT INFORMATION
  Report Type: 
  Country: US (occurrence: US)
  Receive Date: 20121015
  Receipt Date: 20121015
  Transmission Date: 20130627
  Serious: Yes (Life-Threatening, Hospitalization)
  Sender: FDA-Public Use
  Company Number: US-BAYER-2012-105218

PATIENT
  Age: 38 Year
  Sex: Female
  Weight: 113 kg

DRUGS (4)
  1. YASMIN [Suspect]
  2. OCELLA [Suspect]
  3. DARVOCET [Concomitant]
     Dosage: unk, prn
  4. KEFLEX [Concomitant]
     Dosage: 500, BID

REACTIONS (2)
  - Ventricular fibrillation [None]
  - Sudden cardiac death [None]
